FAERS Safety Report 23638856 (Version 3)
Quarter: 2024Q2

REPORT INFORMATION
  Report Type: Spontaneous
  Country: US (occurrence: US)
  Receive Date: 20240315
  Receipt Date: 20240429
  Transmission Date: 20240716
  Serious: Yes (Other)
  Sender: FDA-Public Use
  Company Number: US-009507513-2403USA003132

PATIENT
  Age: 77 Year
  Sex: Male

DRUGS (11)
  1. KEYTRUDA [Suspect]
     Active Substance: PEMBROLIZUMAB
     Indication: Hepatocellular carcinoma
     Dosage: UNK
     Route: 042
     Dates: start: 201911, end: 202111
  2. ELIQUIS [Concomitant]
     Active Substance: APIXABAN
  3. BALANCE B SUPER COMPLEX [Concomitant]
  4. INSULIN NOS [Concomitant]
     Active Substance: INSULIN NOS
  5. BYSTOLIC [Concomitant]
     Active Substance: NEBIVOLOL HYDROCHLORIDE
  6. CARDIZEN [Concomitant]
  7. LASIX [Concomitant]
     Active Substance: FUROSEMIDE
  8. TAMSULOSIN HYDROCHLORIDE [Concomitant]
     Active Substance: TAMSULOSIN HYDROCHLORIDE
  9. NOVOLOG [Concomitant]
     Active Substance: INSULIN ASPART
  10. LANTUS [Concomitant]
     Active Substance: INSULIN GLARGINE
  11. HYDROCHLOROTHIAZIDE [Concomitant]
     Active Substance: HYDROCHLOROTHIAZIDE

REACTIONS (6)
  - Urinary tract obstruction [Recovered/Resolved]
  - Stomatitis [Recovered/Resolved]
  - Tongue haemorrhage [Recovered/Resolved]
  - Tongue coated [Unknown]
  - Toxicity to various agents [Unknown]
  - Oral lichen planus [Unknown]

NARRATIVE: CASE EVENT DATE: 20210901
